FAERS Safety Report 14950806 (Version 1)
Quarter: 2018Q2

REPORT INFORMATION
  Report Type: Spontaneous
  Country: US (occurrence: US)
  Receive Date: 20180508
  Receipt Date: 20180508
  Transmission Date: 20180711
  Serious: No
  Sender: FDA-Public Use
  Company Number: None

PATIENT
  Age: 82 Year
  Sex: Female

DRUGS (1)
  1. VANCOMYCIN 1G FRESENIUS [Suspect]
     Active Substance: VANCOMYCIN
     Indication: URINARY TRACT INFECTION
     Dosage: ?          OTHER FREQUENCY:Q24HR;?
     Route: 042
     Dates: start: 20180425, end: 20180501

REACTIONS (1)
  - Rash generalised [None]

NARRATIVE: CASE EVENT DATE: 20180501
